FAERS Safety Report 8011041-X (Version None)
Quarter: 2011Q4

REPORT INFORMATION
  Report Type: 
  Country: None (occurrence: None)
  Receive Date: 20111228
  Receipt Date: 20111215
  Transmission Date: 20120403
  Serious: Yes (Other)
  Sender: FDA-Public Use
  Company Number: US-ELI_LILLY_AND_COMPANY-US201108004678

PATIENT
  Sex: Male
  Weight: 113.38 kg

DRUGS (8)
  1. ABILIFY [Concomitant]
     Dosage: 1 DF, UNK
     Dates: start: 20080801
  2. LITHIUM [Concomitant]
     Dosage: 1 DF, UNK
     Dates: start: 20050801
  3. COGENTIN [Concomitant]
     Dosage: 1 DF, UNK
     Dates: start: 20081001
  4. TRAZODONE HCL [Concomitant]
     Dosage: 1 DF, UNK
     Dates: start: 20080801
  5. STRATTERA [Suspect]
     Indication: ATTENTION DEFICIT/HYPERACTIVITY DISORDER
     Dosage: 10 MG, EACH MORNING
     Route: 048
     Dates: start: 20070822, end: 20100320
  6. STRATTERA [Suspect]
     Dosage: 40 MG, EACH MORNING
     Route: 048
     Dates: start: 20080305, end: 20100301
  7. MELATONIN [Concomitant]
     Dosage: 1 DF, UNK
  8. STRATTERA [Suspect]
     Dosage: 25 MG, EACH MORNING
     Route: 048

REACTIONS (12)
  - HYPERBILIRUBINAEMIA [None]
  - DYSURIA [None]
  - BIPOLAR I DISORDER [None]
  - DUODENITIS [None]
  - ACARODERMATITIS [None]
  - HEPATIC STEATOSIS [None]
  - GASTROOESOPHAGEAL REFLUX DISEASE [None]
  - LYMPHADENITIS [None]
  - ALANINE AMINOTRANSFERASE INCREASED [None]
  - TIBIA FRACTURE [None]
  - ACNE [None]
  - CHOLECYSTITIS [None]
